FAERS Safety Report 24417573 (Version 1)
Quarter: 2024Q4

REPORT INFORMATION
  Report Type: Spontaneous
  Country: US (occurrence: US)
  Receive Date: 20241009
  Receipt Date: 20241009
  Transmission Date: 20250115
  Serious: No
  Sender: BRISTOL MYERS SQUIBB
  Company Number: US-BRISTOL-MYERS SQUIBB COMPANY-2024-159318

PATIENT
  Age: 78 Year
  Sex: Female

DRUGS (1)
  1. KRAZATI [Suspect]
     Active Substance: ADAGRASIB
     Indication: Product used for unknown indication
     Dosage: TAKE WITH OR WITHOUT FOOD.
     Route: 048

REACTIONS (1)
  - Illness [Unknown]

NARRATIVE: CASE EVENT DATE: 20241007
